FAERS Safety Report 7625866-3 (Version None)
Quarter: 2011Q3

REPORT INFORMATION
  Report Type: 
  Country: None (occurrence: None)
  Receive Date: 20110721
  Receipt Date: 20110708
  Transmission Date: 20111222
  Serious: Yes (Hospitalization, Other)
  Sender: FDA-Public Use
  Company Number: US-AMGEN-USASP2011034867

PATIENT
  Age: 62 Year
  Sex: Male

DRUGS (1)
  1. ENBREL [Suspect]
     Indication: PSORIASIS
     Dosage: UNK
     Dates: start: 20060321

REACTIONS (7)
  - CHEST PAIN [None]
  - OEDEMA GENITAL [None]
  - CAROTID ARTERY OCCLUSION [None]
  - PUNCTURE SITE INFECTION [None]
  - WOUND INFECTION STAPHYLOCOCCAL [None]
  - CELLULITIS STAPHYLOCOCCAL [None]
  - ERUCTATION [None]
